FAERS Safety Report 6092586-9 (Version None)
Quarter: 2009Q1

REPORT INFORMATION
  Report Type: 
  Country: None (occurrence: None)
  Receive Date: 20090225
  Receipt Date: 20080327
  Transmission Date: 20090719
  Serious: No
  Sender: FDA-Public Use
  Company Number: US-BRISTOL-MYERS SQUIBB COMPANY-14129837

PATIENT
  Sex: Female

DRUGS (1)
  1. KENALOG [Suspect]
     Dates: start: 20080301

REACTIONS (6)
  - HALLUCINATION [None]
  - MOOD SWINGS [None]
  - MUSCULAR WEAKNESS [None]
  - MYALGIA [None]
  - POLLAKIURIA [None]
  - VISUAL IMPAIRMENT [None]
